FAERS Safety Report 26202669 (Version 1)
Quarter: 2025Q4

REPORT INFORMATION
  Report Type: Spontaneous
  Country: US (occurrence: US)
  Receive Date: 20251226
  Receipt Date: 20251226
  Transmission Date: 20260117
  Serious: No
  Sender: TEVA
  Company Number: US-TEVA-VS-3403195

PATIENT
  Age: 71 Year
  Sex: Male

DRUGS (4)
  1. GLIPIZIDE [Suspect]
     Active Substance: GLIPIZIDE
     Indication: Blood glucose abnormal
     Route: 048
     Dates: start: 202506
  2. GLIPIZIDE [Suspect]
     Active Substance: GLIPIZIDE
     Indication: Blood glucose abnormal
     Route: 048
  3. METFORMIN [Suspect]
     Active Substance: METFORMIN HYDROCHLORIDE
     Indication: Product used for unknown indication
     Dosage: TEVA DISCONTINUED
     Route: 065
  4. JANUVIA [Concomitant]
     Active Substance: SITAGLIPTIN PHOSPHATE
     Indication: Product used for unknown indication

REACTIONS (4)
  - Drug ineffective [Unknown]
  - Glycosylated haemoglobin decreased [Unknown]
  - Blood triglycerides decreased [Unknown]
  - Inappropriate schedule of product administration [Unknown]

NARRATIVE: CASE EVENT DATE: 20250101
